FAERS Safety Report 16124213 (Version 1)
Quarter: 2019Q1

REPORT INFORMATION
  Report Type: Spontaneous
  Country: US (occurrence: US)
  Receive Date: 20190327
  Receipt Date: 20190327
  Transmission Date: 20190418
  Serious: No
  Sender: FDA-Public Use
  Company Number: US-ANIPHARMA-2018-US-019281

PATIENT
  Age: 77 Year
  Sex: Male

DRUGS (7)
  1. COZAAR [Concomitant]
     Active Substance: LOSARTAN POTASSIUM
  2. PEPCID [Concomitant]
     Active Substance: FAMOTIDINE
  3. LIPITOR [Concomitant]
     Active Substance: ATORVASTATIN CALCIUM
  4. HYDROCHLOROTHIAZIDE (HCTZ) [Concomitant]
     Active Substance: HYDROCHLOROTHIAZIDE
  5. ASPIRIN. [Concomitant]
     Active Substance: ASPIRIN
  6. CASODEX [Suspect]
     Active Substance: BICALUTAMIDE
     Indication: PROSTATE CANCER
     Route: 048
     Dates: start: 201603
  7. ELIGARD [Suspect]
     Active Substance: LEUPROLIDE ACETATE
     Dosage: Q6MO
     Route: 058
     Dates: start: 20180502

REACTIONS (3)
  - Blood testosterone increased [Not Recovered/Not Resolved]
  - Hot flush [Not Recovered/Not Resolved]
  - Prostatic specific antigen increased [Not Recovered/Not Resolved]
